FAERS Safety Report 24748445 (Version 12)
Quarter: 2025Q3

REPORT INFORMATION
  Report Type: Report from Study
  Country: US (occurrence: US)
  Receive Date: 20241218
  Receipt Date: 20250828
  Transmission Date: 20251021
  Serious: Yes (Hospitalization, Disabling, Other)
  Sender: BAXTER
  Company Number: US-BAXTER-2024BAX029483

PATIENT
  Age: 72 Year
  Sex: Male
  Weight: 101.8 kg

DRUGS (15)
  1. CYCLOPHOSPHAMIDE [Suspect]
     Active Substance: CYCLOPHOSPHAMIDE
     Indication: Diffuse large B-cell lymphoma
     Dosage: 1867.6 MG, EVERY 3 WEEKS
     Route: 042
     Dates: start: 20241018, end: 20241203
  2. CYCLOPHOSPHAMIDE [Suspect]
     Active Substance: CYCLOPHOSPHAMIDE
     Dosage: 933.8 MG, EVERY 3 WEEKS
     Route: 042
     Dates: start: 20250218
  3. DOXORUBICIN [Suspect]
     Active Substance: DOXORUBICIN
     Indication: Diffuse large B-cell lymphoma
     Dosage: 124.5 MG, EVERY 3 WEEKS
     Route: 042
     Dates: start: 20241017, end: 20241203
  4. DOXORUBICIN [Suspect]
     Active Substance: DOXORUBICIN
     Dosage: 62.26 MG, EVERY 3 WEEKS
     Route: 042
     Dates: start: 20250218
  5. EPCORITAMAB [Suspect]
     Active Substance: EPCORITAMAB
     Indication: Diffuse large B-cell lymphoma
     Route: 058
     Dates: start: 20241018, end: 20241203
  6. EPCORITAMAB [Suspect]
     Active Substance: EPCORITAMAB
     Route: 058
     Dates: start: 20250211
  7. VINCRISTINE [Suspect]
     Active Substance: VINCRISTINE
     Indication: Diffuse large B-cell lymphoma
     Dosage: 2 MG, EVERY 3 WEEKS
     Route: 042
     Dates: start: 20241018, end: 20241203
  8. VINCRISTINE [Suspect]
     Active Substance: VINCRISTINE
     Dosage: 2 MG, EVERY 3 WEEKS
     Route: 042
     Dates: start: 20250218
  9. RITUXIMAB [Suspect]
     Active Substance: RITUXIMAB
     Indication: Diffuse large B-cell lymphoma
     Dosage: 934 MG, EVERY 3 WEEKS
     Route: 042
     Dates: start: 20241017, end: 20241203
  10. RITUXIMAB [Suspect]
     Active Substance: RITUXIMAB
     Dosage: 934 MG, EVERY 3 WEEKS
     Route: 042
     Dates: start: 20250218
  11. PREDNISONE [Suspect]
     Active Substance: PREDNISONE
     Indication: Diffuse large B-cell lymphoma
     Dosage: 100 MG C1-6, DAY 1-5, EVERY 1 DAYS
     Route: 048
     Dates: start: 20241017, end: 20241203
  12. PREDNISONE [Suspect]
     Active Substance: PREDNISONE
     Dosage: 100 MG C1-6, DAY 1-5, EVERY 1 DAYS
     Route: 048
     Dates: start: 20250218
  13. AMLODIPINE [Concomitant]
     Active Substance: AMLODIPINE BESYLATE
     Indication: Hypertension
     Dosage: 10 MG, QD
     Route: 065
     Dates: start: 20200724
  14. MEROPENEM [Concomitant]
     Active Substance: MEROPENEM
     Indication: Cytomegalovirus colitis
     Dosage: 100 ML, TID (EVERY 8 HOURS)
     Route: 065
     Dates: start: 20241211, end: 20241218
  15. GANCICLOVIR [Concomitant]
     Active Substance: GANCICLOVIR
     Indication: Cytomegalovirus colitis
     Route: 065
     Dates: start: 20241214

REACTIONS (3)
  - Large intestine perforation [Recovered/Resolved with Sequelae]
  - Klebsiella sepsis [Recovered/Resolved]
  - Neutropenia [Recovered/Resolved]

NARRATIVE: CASE EVENT DATE: 20241210
